FAERS Safety Report 9248327 (Version 2)
Quarter: 2013Q2

REPORT INFORMATION
  Report Type: Spontaneous
  Country: US (occurrence: US)
  Receive Date: 20130423
  Receipt Date: 20130617
  Transmission Date: 20140414
  Serious: Yes (Death, Hospitalization)
  Sender: FDA-Public Use
  Company Number: US-CELGENEUS-163-21880-13042766

PATIENT
  Age: 58 Year
  Sex: Male
  Weight: 74.91 kg

DRUGS (3)
  1. REVLIMID [Suspect]
     Indication: AMYLOIDOSIS
     Dosage: 5 MILLIGRAM
     Route: 048
     Dates: start: 20130131, end: 201302
  2. REVLIMID [Suspect]
     Dosage: 5 MILLIGRAM
     Route: 048
     Dates: start: 20130416
  3. POMALYST [Suspect]
     Indication: AMYLOIDOSIS
     Dosage: 3 MILLIGRAM
     Dates: start: 20130314

REACTIONS (3)
  - Death [Fatal]
  - Full blood count decreased [Unknown]
  - Stress fracture [Recovered/Resolved]
